FAERS Safety Report 9224232 (Version 1)
Quarter: 2013Q1

REPORT INFORMATION
  Report Type: Spontaneous
  Country: DE (occurrence: None)
  Receive Date: 20120914
  Receipt Date: 20120914
  Transmission Date: 20140127
  Serious: Yes (Hospitalization, Other)
  Sender: FDA-Public Use
  Company Number: JPI-P-019577

PATIENT
  Age: 23 Year
  Sex: Male

DRUGS (3)
  1. XYREM (500 MILLIGRAM/MILLILITERS, SOLUTION) (SODIUM OXYBATE) [Suspect]
     Indication: NARCOLEPSY
     Route: 048
     Dates: start: 200903
  2. ACETYLSALICYCLIC ACID [Concomitant]
  3. SIMVASTATIN [Concomitant]

REACTIONS (2)
  - Psychotic disorder [None]
  - Drug ineffective [None]
